FAERS Safety Report 25384312 (Version 1)
Quarter: 2025Q2

REPORT INFORMATION
  Report Type: Spontaneous
  Country: IN (occurrence: IN)
  Receive Date: 20250602
  Receipt Date: 20250602
  Transmission Date: 20250716
  Serious: Yes (Other)
  Sender: MACLEODS
  Company Number: IN-MACLEODS PHARMA-MAC2025053259

PATIENT

DRUGS (3)
  1. PREGABALIN [Suspect]
     Active Substance: PREGABALIN
     Indication: Spinal osteoarthritis
     Route: 065
  2. PREGABALIN [Suspect]
     Active Substance: PREGABALIN
     Route: 065
  3. UNSPECIFIED INGREDIENT [Suspect]
     Active Substance: UNSPECIFIED INGREDIENT
     Indication: Product used for unknown indication
     Route: 065

REACTIONS (6)
  - Withdrawal syndrome [Unknown]
  - Feeling of despair [Recovering/Resolving]
  - Suicidal ideation [Recovering/Resolving]
  - Suicide attempt [Unknown]
  - Intentional overdose [Unknown]
  - Drug dependence [Unknown]
